FAERS Safety Report 13848883 (Version 1)
Quarter: 2017Q3

REPORT INFORMATION
  Report Type: Spontaneous
  Country: US (occurrence: US)
  Receive Date: 20170809
  Receipt Date: 20170809
  Transmission Date: 20171127
  Serious: Yes (Other)
  Sender: FDA-Public Use
  Company Number: None

PATIENT
  Age: 32 Year
  Sex: Female
  Weight: 86.9 kg

DRUGS (1)
  1. RITUXAN [Suspect]
     Active Substance: RITUXIMAB
     Indication: MULTIPLE SCLEROSIS
     Dosage: 1000 MG Q 14 DAYS IV
     Route: 042
     Dates: start: 20170728

REACTIONS (4)
  - Hypersensitivity [None]
  - Pruritus [None]
  - Feeling abnormal [None]
  - Pharyngeal disorder [None]

NARRATIVE: CASE EVENT DATE: 20170728
